FAERS Safety Report 12950557 (Version 1)
Quarter: 2016Q4

REPORT INFORMATION
  Report Type: Spontaneous
  Country: IR (occurrence: IR)
  Receive Date: 20161117
  Receipt Date: 20161117
  Transmission Date: 20170207
  Serious: Yes (Death, Other)
  Sender: FDA-Public Use
  Company Number: IR-AMGEN-IRNSP2016161806

PATIENT
  Age: 5 Year
  Sex: Male

DRUGS (1)
  1. BLINCYTO [Suspect]
     Active Substance: BLINATUMOMAB
     Indication: ACUTE LYMPHOCYTIC LEUKAEMIA
     Dosage: 30 MUG/M2, QD
     Route: 065

REACTIONS (3)
  - Cardiac failure [Fatal]
  - Cytokine release syndrome [Fatal]
  - Tumour lysis syndrome [Unknown]
